FAERS Safety Report 7711033-1 (Version None)
Quarter: 2011Q3

REPORT INFORMATION
  Report Type: 
  Country: None (occurrence: None)
  Receive Date: 20110825
  Receipt Date: 20110815
  Transmission Date: 20111222
  Serious: Yes (Death)
  Sender: FDA-Public Use
  Company Number: TR-BRISTOL-MYERS SQUIBB COMPANY-15973084

PATIENT
  Age: 43 Year
  Sex: Female

DRUGS (3)
  1. HEPARIN SODIUM [Suspect]
     Indication: ANTICOAGULANT THERAPY
  2. WARFARIN SODIUM [Suspect]
     Indication: ANTICOAGULANT THERAPY
  3. DROSPIRENONE AND ETHINYL ESTRADIOL [Suspect]
     Indication: CONTRACEPTION
     Dosage: 1DF:0.03MG/3MG
     Route: 048

REACTIONS (1)
  - CARDIO-RESPIRATORY ARREST [None]
